FAERS Safety Report 15923530 (Version 1)
Quarter: 2019Q1

REPORT INFORMATION
  Report Type: Spontaneous
  Country: GB (occurrence: GB)
  Receive Date: 20190206
  Receipt Date: 20190206
  Transmission Date: 20190417
  Serious: Yes (Other)
  Sender: FDA-Public Use
  Company Number: GB-ACCORD-105448

PATIENT
  Age: 47 Year
  Sex: Male
  Weight: 42 kg

DRUGS (13)
  1. INSULIN ASPART [Concomitant]
     Active Substance: INSULIN ASPART
  2. METRONIDAZOLE. [Concomitant]
     Active Substance: METRONIDAZOLE
  3. INSULIN DETEMIR [Concomitant]
     Active Substance: INSULIN DETEMIR
  4. AMOXICILLIN. [Concomitant]
     Active Substance: AMOXICILLIN
  5. THIAMINE. [Concomitant]
     Active Substance: THIAMINE
  6. LORAZEPAM. [Concomitant]
     Active Substance: LORAZEPAM
  7. RANITIDINE. [Concomitant]
     Active Substance: RANITIDINE
  8. CREON [Concomitant]
     Active Substance: PANCRELIPASE AMYLASE\PANCRELIPASE LIPASE\PANCRELIPASE PROTEASE
  9. PABRINEX [Concomitant]
     Active Substance: ASCORBIC ACID\VITAMIN B COMPLEX
  10. TRAZODONE [Suspect]
     Active Substance: TRAZODONE HYDROCHLORIDE
     Indication: AGITATION
     Route: 048
     Dates: start: 20180424, end: 20180512
  11. FORCEVAL [Concomitant]
     Active Substance: FOLIC ACID\IRON\MINERALS\VITAMINS
  12. PARACETAMOL [Concomitant]
     Active Substance: ACETAMINOPHEN
  13. SENNA ALEXANDRINA [Concomitant]
     Active Substance: SENNA LEAF

REACTIONS (2)
  - Off label use [Unknown]
  - Thrombocytopenia [Recovered/Resolved]

NARRATIVE: CASE EVENT DATE: 20180501
